FAERS Safety Report 15059488 (Version 3)
Quarter: 2018Q3

REPORT INFORMATION
  Report Type: Spontaneous
  Country: BE (occurrence: BE)
  Receive Date: 20180625
  Receipt Date: 20180719
  Transmission Date: 20181010
  Serious: Yes (Death, Life-Threatening, Hospitalization, Other)
  Sender: FDA-Public Use
  Company Number: BE-MYLANLABS-2018M1046085

PATIENT
  Age: 6 Year
  Sex: Female

DRUGS (1)
  1. VALPROIC ACID. [Suspect]
     Active Substance: VALPROIC ACID
     Indication: EPILEPSY
     Dosage: UNK
     Route: 065
     Dates: start: 20091115, end: 200912

REACTIONS (11)
  - Dystonia [Fatal]
  - Psychomotor hyperactivity [Fatal]
  - Metabolic encephalopathy [Fatal]
  - Nervous system disorder [Fatal]
  - Eyelid ptosis [Fatal]
  - Acute hepatic failure [Fatal]
  - Stupor [Fatal]
  - Liver disorder [Fatal]
  - Drug-induced liver injury [Fatal]
  - Amyotrophy [Fatal]
  - Condition aggravated [Fatal]

NARRATIVE: CASE EVENT DATE: 2009
